FAERS Safety Report 10523297 (Version 5)
Quarter: 2015Q1

REPORT INFORMATION
  Report Type: Report from Study
  Country: US (occurrence: US)
  Receive Date: 20141016
  Receipt Date: 20150218
  Transmission Date: 20150720
  Serious: Yes (Hospitalization)
  Sender: FDA-Public Use
  Company Number: US-ACTELION-A-NJ2014-98550

PATIENT
  Age: 88 Year
  Sex: Female

DRUGS (11)
  1. TRACLEER [Suspect]
     Active Substance: BOSENTAN\BOSENTAN MONOHYDRATE
     Dosage: 62.5 MG, QD
     Route: 048
     Dates: start: 2012
  2. LORAZEPAM. [Concomitant]
     Active Substance: LORAZEPAM
     Dosage: UNK
     Dates: start: 1999
  3. ELIQUIS [Concomitant]
     Active Substance: APIXABAN
     Indication: ARRHYTHMIA
     Dosage: UNK
     Dates: start: 20141016
  4. AVAPRO [Concomitant]
     Active Substance: IRBESARTAN
     Dosage: 75 MG, BID
     Dates: start: 2004
  5. TRACLEER [Suspect]
     Active Substance: BOSENTAN\BOSENTAN MONOHYDRATE
     Indication: PULMONARY ARTERIAL HYPERTENSION
     Dosage: 125 MG, BID
     Route: 048
     Dates: start: 2012
  6. POTASSIUM [Concomitant]
     Active Substance: POTASSIUM
     Dosage: 99 MG (TITER), QD
     Dates: start: 2012
  7. ADCIRCA [Concomitant]
     Active Substance: TADALAFIL
  8. VITAMIN D [Concomitant]
     Active Substance: CHOLECALCIFEROL
     Dosage: 1000 IU, QD
  9. TRACLEER [Suspect]
     Active Substance: BOSENTAN\BOSENTAN MONOHYDRATE
     Dosage: 62.5 MG, BID
     Route: 048
     Dates: start: 2009, end: 2012
  10. MAGNESIUM [Concomitant]
     Active Substance: MAGNESIUM
     Dosage: UNK
     Dates: start: 201410
  11. FISH OIL [Concomitant]
     Active Substance: FISH OIL

REACTIONS (11)
  - Muscle spasms [Not Recovered/Not Resolved]
  - Tachycardia [Not Recovered/Not Resolved]
  - Nausea [Recovered/Resolved]
  - Dyspnoea exertional [Not Recovered/Not Resolved]
  - Feeling abnormal [Recovered/Resolved]
  - Fatigue [Not Recovered/Not Resolved]
  - Condition aggravated [Not Recovered/Not Resolved]
  - Dyspnoea [Unknown]
  - Atrial flutter [Recovered/Resolved]
  - Pulmonary fibrosis [Not Recovered/Not Resolved]
  - Atrial fibrillation [Recovered/Resolved]

NARRATIVE: CASE EVENT DATE: 2012
